FAERS Safety Report 6388996-2 (Version None)
Quarter: 2009Q4

REPORT INFORMATION
  Report Type: 
  Country: None (occurrence: None)
  Receive Date: 20091001
  Receipt Date: 20090917
  Transmission Date: 20100525
  Serious: Yes (Hospitalization)
  Sender: FDA-Public Use
  Company Number: 2009SP002522

PATIENT
  Age: 85 Year
  Sex: Female

DRUGS (14)
  1. XOPENEX [Suspect]
     Dosage: ; Q4H;
     Dates: start: 20090601, end: 20090101
  2. ALVESCO INHALATION [Concomitant]
  3. AEROSOL [Concomitant]
  4. ATIVAN [Concomitant]
  5. BETAPACE [Concomitant]
  6. LASIX [Concomitant]
  7. THEOPHYLLINE [Concomitant]
  8. PRILOSEC [Concomitant]
  9. ALBUTEROL [Concomitant]
  10. CITRICAL /00108001/ [Concomitant]
  11. MULTI-VITAMINS [Concomitant]
  12. VICODIN [Concomitant]
  13. BIAXIN [Concomitant]
  14. POTASSIUM CHLORIDE [Concomitant]

REACTIONS (12)
  - ATRIAL FIBRILLATION [None]
  - CEREBROVASCULAR ACCIDENT [None]
  - CHRONIC OBSTRUCTIVE PULMONARY DISEASE [None]
  - DEPRESSION [None]
  - DIABETES MELLITUS [None]
  - HYPERTENSION [None]
  - HYPOKALAEMIA [None]
  - HYPOTENSION [None]
  - OLIGURIA [None]
  - ORAL CANDIDIASIS [None]
  - PNEUMONIA [None]
  - RESPIRATORY DISTRESS [None]
